FAERS Safety Report 17559678 (Version 1)
Quarter: 2020Q1

REPORT INFORMATION
  Report Type: Spontaneous
  Country: CN (occurrence: CN)
  Receive Date: 20200319
  Receipt Date: 20200319
  Transmission Date: 20200409
  Serious: Yes (Other)
  Sender: FDA-Public Use
  Company Number: CN-ROCHE-2566583

PATIENT
  Sex: Female

DRUGS (14)
  1. HERCEPTIN [Suspect]
     Active Substance: TRASTUZUMAB
     Route: 065
     Dates: start: 20190805
  2. PACLITAXEL. [Concomitant]
     Active Substance: PACLITAXEL
     Indication: INVASIVE DUCTAL BREAST CARCINOMA
     Dosage: TCBH REGIMEN
     Route: 065
     Dates: start: 20190221
  3. ZOLEDRONIC ACID [Concomitant]
     Active Substance: ZOLEDRONIC ACID
     Indication: INVASIVE DUCTAL BREAST CARCINOMA
     Route: 065
     Dates: start: 20190221
  4. PERJETA [Suspect]
     Active Substance: PERTUZUMAB
     Route: 065
     Dates: start: 20190805
  5. PERJETA [Suspect]
     Active Substance: PERTUZUMAB
     Route: 065
     Dates: start: 20191108
  6. PACLITAXEL. [Concomitant]
     Active Substance: PACLITAXEL
     Route: 065
     Dates: start: 20191129
  7. HERCEPTIN [Suspect]
     Active Substance: TRASTUZUMAB
     Indication: INVASIVE DUCTAL BREAST CARCINOMA
     Dosage: TCBH REGIMEN
     Route: 065
     Dates: start: 20190221
  8. HERCEPTIN [Suspect]
     Active Substance: TRASTUZUMAB
     Dosage: TPH REGIMEN 2CYCLES
     Route: 065
     Dates: start: 20190624
  9. PERJETA [Suspect]
     Active Substance: PERTUZUMAB
     Route: 065
     Dates: start: 20191129
  10. HERCEPTIN [Suspect]
     Active Substance: TRASTUZUMAB
     Route: 065
     Dates: start: 20191108
  11. PACLITAXEL. [Concomitant]
     Active Substance: PACLITAXEL
     Dosage: TPH REGIMEN 2CYCLES
     Route: 065
     Dates: start: 20190624
  12. HERCEPTIN [Suspect]
     Active Substance: TRASTUZUMAB
     Route: 065
     Dates: start: 20191129
  13. PERJETA [Suspect]
     Active Substance: PERTUZUMAB
     Indication: INVASIVE DUCTAL BREAST CARCINOMA
     Dosage: TPH REGIMEN 2CYCLES
     Route: 065
     Dates: start: 20190624
  14. CARBOPLATIN. [Concomitant]
     Active Substance: CARBOPLATIN
     Indication: INVASIVE DUCTAL BREAST CARCINOMA
     Dosage: TCBH REGIMEN
     Route: 065
     Dates: start: 20190221

REACTIONS (8)
  - Hypokalaemia [Unknown]
  - Hepatic function abnormal [Unknown]
  - Cystic lung disease [Unknown]
  - Peritumoural oedema [Unknown]
  - Hypoproteinaemia [Unknown]
  - Neutrophil count decreased [Unknown]
  - Anaemia [Unknown]
  - Renal cyst [Unknown]
